FAERS Safety Report 25504487 (Version 1)
Quarter: 2025Q3

REPORT INFORMATION
  Report Type: Spontaneous
  Country: CN (occurrence: CN)
  Receive Date: 20250702
  Receipt Date: 20250702
  Transmission Date: 20251020
  Serious: Yes (Hospitalization, Other)
  Sender: PFIZER
  Company Number: CN-PFIZER INC-PV202500077697

PATIENT
  Age: 69 Year
  Sex: Male
  Weight: 74 kg

DRUGS (2)
  1. IRINOTECAN [Suspect]
     Active Substance: IRINOTECAN
     Indication: Neoplasm
     Route: 041
     Dates: start: 20250529
  2. IRINOTECAN [Suspect]
     Active Substance: IRINOTECAN
     Dosage: 180 MG, 1X/DAY (8TH DAY OF THE FIRST CYCLE)
     Route: 041
     Dates: start: 20250606, end: 20250606

REACTIONS (3)
  - Diarrhoea [Recovering/Resolving]
  - Asthenia [Unknown]
  - Loss of personal independence in daily activities [Unknown]

NARRATIVE: CASE EVENT DATE: 20250530
